FAERS Safety Report 7928211-9 (Version None)
Quarter: 2011Q4

REPORT INFORMATION
  Report Type: 
  Country: None (occurrence: None)
  Receive Date: 20111118
  Receipt Date: 20111110
  Transmission Date: 20120403
  Serious: Yes (Other)
  Sender: FDA-Public Use
  Company Number: JP-JNJFOC-20111100682

PATIENT
  Sex: Female

DRUGS (2)
  1. GALANTAMINE HYDROBROMIDE [Suspect]
     Indication: MEMORY IMPAIRMENT
     Route: 048
  2. GALANTAMINE HYDROBROMIDE [Suspect]
     Indication: PARKINSONISM
     Route: 048

REACTIONS (2)
  - OFF LABEL USE [None]
  - PSYCHOMOTOR HYPERACTIVITY [None]
